FAERS Safety Report 4354898-6 (Version None)
Quarter: 2004Q2

REPORT INFORMATION
  Report Type: 
  Country: None (occurrence: None)
  Receive Date: 20040507
  Receipt Date: 20040429
  Transmission Date: 20050107
  Serious: Yes (Life-Threatening)
  Sender: FDA-Public Use
  Company Number: US-MERCK-0405USA00165

PATIENT
  Sex: Male

DRUGS (1)
  1. PROSCAR [Suspect]
     Route: 048

REACTIONS (1)
  - BREAST CANCER [None]
